FAERS Safety Report 26007479 (Version 1)
Quarter: 2025Q4

REPORT INFORMATION
  Report Type: Spontaneous
  Country: KR (occurrence: KR)
  Receive Date: 20251106
  Receipt Date: 20251106
  Transmission Date: 20260117
  Serious: Yes (Other)
  Sender: MYLAN
  Company Number: KR-MYLANLABS-2025M1093559

PATIENT
  Sex: Male

DRUGS (4)
  1. NEURONTIN [Suspect]
     Active Substance: GABAPENTIN
     Indication: Cerebrovascular accident
     Dosage: 1 DOSAGE FORM, QD
     Dates: start: 20220719, end: 20220723
  2. NEURONTIN [Suspect]
     Active Substance: GABAPENTIN
     Dosage: 1 DOSAGE FORM, QD
     Route: 065
     Dates: start: 20220719, end: 20220723
  3. NEURONTIN [Suspect]
     Active Substance: GABAPENTIN
     Dosage: 1 DOSAGE FORM, QD
     Route: 065
     Dates: start: 20220719, end: 20220723
  4. NEURONTIN [Suspect]
     Active Substance: GABAPENTIN
     Dosage: 1 DOSAGE FORM, QD
     Dates: start: 20220719, end: 20220723

REACTIONS (4)
  - Syncope [Recovered/Resolved]
  - Stupor [Recovered/Resolved]
  - Dizziness [Recovered/Resolved]
  - Product use in unapproved indication [Unknown]

NARRATIVE: CASE EVENT DATE: 20220719
